FAERS Safety Report 25958872 (Version 2)
Quarter: 2025Q4

REPORT INFORMATION
  Report Type: Spontaneous
  Country: US (occurrence: US)
  Receive Date: 20251025
  Receipt Date: 20251106
  Transmission Date: 20260118
  Serious: Yes (Life-Threatening, Hospitalization)
  Sender: ACCORD
  Company Number: US-MLMSERVICE-20251006-PI667942-00101-1

PATIENT
  Sex: Male
  Weight: 19.9 kg

DRUGS (35)
  1. CARBOPLATIN [Suspect]
     Active Substance: CARBOPLATIN
     Indication: Hepatic cancer recurrent
     Dosage: POST-LIVER TRANSPLANT
     Dates: start: 2023, end: 2023
  2. CISPLATIN [Suspect]
     Active Substance: CISPLATIN
     Indication: Hepatic cancer recurrent
     Dosage: C5VD CYCLE 1,2,3,4
     Dates: start: 2022, end: 2022
  3. ETOPOSIDE [Suspect]
     Active Substance: ETOPOSIDE
     Indication: Hepatic cancer recurrent
     Dosage: POST-LIVER TRANSPLANT
     Dates: start: 2023, end: 2023
  4. FLUOROURACIL [Suspect]
     Active Substance: FLUOROURACIL
     Indication: Hepatic cancer recurrent
     Dosage: C5VD CYCLE 1,2,3,4
     Dates: start: 2022, end: 2022
  5. IRINOTECAN [Suspect]
     Active Substance: IRINOTECAN
     Indication: Hepatic cancer recurrent
     Dosage: CYCLE 1
     Dates: start: 2022, end: 2023
  6. GEMCITABINE [Suspect]
     Active Substance: GEMCITABINE
     Indication: Hepatic cancer recurrent
     Dates: start: 2024, end: 2025
  7. OXALIPLATIN [Suspect]
     Active Substance: OXALIPLATIN
     Indication: Hepatic cancer recurrent
     Dates: start: 2024, end: 2025
  8. DOXORUBICIN [Suspect]
     Active Substance: DOXORUBICIN
     Indication: Hepatic cancer recurrent
     Dosage: C5VD CYCLE 1,2,3,4
     Dates: start: 2022, end: 2022
  9. VINCRISTINE [Suspect]
     Active Substance: VINCRISTINE
     Indication: Hepatic cancer recurrent
     Dosage: C5VD CYCLE 1,2,3,4
     Dates: start: 2022, end: 2022
  10. VORINOSTAT [Suspect]
     Active Substance: VORINOSTAT
     Indication: Hepatic cancer recurrent
     Dosage: ELEVEN MONTHS POST-TRANSPLANT
     Dates: start: 2024, end: 2024
  11. VINCRISTINE [Suspect]
     Active Substance: VINCRISTINE
     Indication: Hepatic cancer recurrent
     Dosage: C5VD CYCLE 5 AND 6 (POST-LIVER TRANSPLANT)
     Dates: start: 2023, end: 2023
  12. VINCRISTINE [Suspect]
     Active Substance: VINCRISTINE
     Indication: Hepatic cancer recurrent
     Dosage: CYCLE 1
     Dates: start: 2022, end: 2023
  13. VINCRISTINE [Suspect]
     Active Substance: VINCRISTINE
     Indication: Hepatic cancer recurrent
     Dosage: CYCLE 2
     Dates: start: 2023, end: 2023
  14. VINCRISTINE [Suspect]
     Active Substance: VINCRISTINE
     Indication: Hepatoblastoma
     Dosage: C5VD CYCLE 1,2,3,4
     Dates: start: 2022, end: 2022
  15. CARBOPLATIN [Suspect]
     Active Substance: CARBOPLATIN
     Indication: Hepatoblastoma
     Dosage: POST-LIVER TRANSPLANT
     Dates: start: 2023, end: 2023
  16. ETOPOSIDE [Suspect]
     Active Substance: ETOPOSIDE
     Indication: Hepatoblastoma
     Dosage: POST-LIVER TRANSPLANT
     Dates: start: 2023, end: 2023
  17. VORINOSTAT [Suspect]
     Active Substance: VORINOSTAT
     Indication: Hepatoblastoma
     Dosage: ELEVEN MONTHS POST-TRANSPLANT
     Dates: start: 2024, end: 2024
  18. IRINOTECAN [Suspect]
     Active Substance: IRINOTECAN
     Indication: Hepatic cancer recurrent
     Dosage: CYCLE 1
     Dates: start: 2023, end: 2023
  19. IRINOTECAN [Suspect]
     Active Substance: IRINOTECAN
     Indication: Hepatoblastoma
     Dosage: CYCLE 1
     Dates: start: 2022, end: 2023
  20. GEMCITABINE [Suspect]
     Active Substance: GEMCITABINE
     Indication: Hepatoblastoma
     Dates: start: 2024, end: 2025
  21. OXALIPLATIN [Suspect]
     Active Substance: OXALIPLATIN
     Indication: Hepatoblastoma
     Dates: start: 2024, end: 2025
  22. CARBOPLATIN [Suspect]
     Active Substance: CARBOPLATIN
     Indication: Hepatocellular carcinoma
     Dosage: POST-LIVER TRANSPLANT
     Dates: start: 2023, end: 2023
  23. ETOPOSIDE [Suspect]
     Active Substance: ETOPOSIDE
     Indication: Hepatocellular carcinoma
     Dosage: POST-LIVER TRANSPLANT
     Dates: start: 2023, end: 2023
  24. FLUOROURACIL [Suspect]
     Active Substance: FLUOROURACIL
     Indication: Hepatic cancer recurrent
     Dosage: C5VD CYCLE 1,2,3,4
     Dates: start: 2022, end: 2022
  25. FLUOROURACIL [Suspect]
     Active Substance: FLUOROURACIL
     Indication: Hepatoblastoma
     Dosage: C5VD CYCLE 1,2,3,4
     Dates: start: 2022, end: 2022
  26. FLUOROURACIL [Suspect]
     Active Substance: FLUOROURACIL
     Indication: Hepatocellular carcinoma
     Dosage: C5VD CYCLE 1,2,3,4
     Dates: start: 2022, end: 2022
  27. FLUOROURACIL [Suspect]
     Active Substance: FLUOROURACIL
     Indication: Hepatic cancer recurrent
     Dosage: C5VD CYCLE 5 AND 6 (POST-LIVER TRANSPLANT)
     Dates: start: 2022, end: 2022
  28. GEMCITABINE [Suspect]
     Active Substance: GEMCITABINE
     Indication: Hepatocellular carcinoma
     Dates: start: 2024, end: 2025
  29. OXALIPLATIN [Suspect]
     Active Substance: OXALIPLATIN
     Indication: Hepatocellular carcinoma
     Dates: start: 2024, end: 2025
  30. VORINOSTAT [Suspect]
     Active Substance: VORINOSTAT
     Indication: Hepatocellular carcinoma
     Dosage: ELEVEN MONTHS POST-TRANSPLANT
     Dates: start: 2024, end: 2024
  31. CISPLATIN [Suspect]
     Active Substance: CISPLATIN
     Indication: Hepatic cancer recurrent
     Dosage: C5VD CYCLE 5 AND 6 (POST-LIVER TRANSPLANT)
     Dates: start: 2023, end: 2023
  32. CISPLATIN [Suspect]
     Active Substance: CISPLATIN
     Indication: Hepatic cancer recurrent
     Dosage: ELEVEN MONTHS POST-TRANSPLANT
     Dates: start: 2024, end: 2024
  33. CISPLATIN [Suspect]
     Active Substance: CISPLATIN
     Indication: Hepatoblastoma
     Dosage: C5VD CYCLE 1,2,3,4
     Dates: start: 2022, end: 2022
  34. DOXORUBICIN [Suspect]
     Active Substance: DOXORUBICIN
     Indication: Hepatic cancer recurrent
     Dosage: C5VD CYCLE 5 AND 6 (POST-LIVER TRANSPLANT)
     Dates: start: 2023, end: 2023
  35. DOXORUBICIN [Suspect]
     Active Substance: DOXORUBICIN
     Indication: Hepatoblastoma
     Dosage: C5VD CYCLE 1,2,3,4
     Dates: start: 2022, end: 2022

REACTIONS (2)
  - Radiation hepatitis [Recovered/Resolved]
  - Off label use [Unknown]

NARRATIVE: CASE EVENT DATE: 20240101
